FAERS Safety Report 5763603-8 (Version None)
Quarter: 2008Q2

REPORT INFORMATION
  Report Type: 
  Country: None (occurrence: None)
  Receive Date: 20080610
  Receipt Date: 20080604
  Transmission Date: 20081010
  Serious: Yes (Other)
  Sender: FDA-Public Use
  Company Number: PHEH2008US05086

PATIENT

DRUGS (1)
  1. VIVELLE-DOT [Suspect]
     Dosage: UNK
     Route: 062
     Dates: start: 20010101

REACTIONS (2)
  - BLINDNESS [None]
  - CEREBROVASCULAR ACCIDENT [None]
